FAERS Safety Report 13956724 (Version 1)
Quarter: 2017Q3

REPORT INFORMATION
  Report Type: Spontaneous
  Country: US (occurrence: US)
  Receive Date: 20170912
  Receipt Date: 20170912
  Transmission Date: 20171128
  Serious: Yes (Hospitalization, Other)
  Sender: FDA-Public Use
  Company Number: US-INSYS THERAPEUTICS, INC-INS201708-000517

PATIENT
  Sex: Female

DRUGS (5)
  1. SUBSYS [Suspect]
     Active Substance: FENTANYL
     Indication: BREAKTHROUGH PAIN
     Route: 060
  2. SUBSYS [Suspect]
     Active Substance: FENTANYL
     Route: 060
  3. SUBSYS [Suspect]
     Active Substance: FENTANYL
     Route: 060
     Dates: start: 2016
  4. SYNTHROID [Concomitant]
  5. IBUPROFEN [Concomitant]

REACTIONS (3)
  - Suicidal ideation [Recovered/Resolved]
  - Drug withdrawal syndrome [Recovered/Resolved]
  - Euphoric mood [Recovered/Resolved]
